FAERS Safety Report 8143027 (Version 3)
Quarter: 2012Q4

REPORT INFORMATION
  Report Type: 
  Country: US (occurrence: US)
  Receive Date: 20110919
  Receipt Date: 20121015
  Transmission Date: 20130627
  Serious: Yes (Other)
  Sender: FDA-Public Use
  Company Number: US-ASTRAZENECA-2011SE54816

PATIENT
  Age: 81 Year
  Sex: Female

DRUGS (1)
  1. NEXIUM [Suspect]
     Route: 048

REACTIONS (7)
  - Cerebrovascular accident [Unknown]
  - Upper limb fracture [Unknown]
  - Fall [Unknown]
  - Cardiac disorder [Unknown]
  - Blood cholesterol [Unknown]
  - Malaise [Unknown]
  - Drug dose omission [Unknown]
